FAERS Safety Report 8209888-X (Version None)
Quarter: 2012Q1

REPORT INFORMATION
  Report Type: 
  Country: None (occurrence: None)
  Receive Date: 20120314
  Receipt Date: 20120305
  Transmission Date: 20120608
  Serious: Yes (Hospitalization)
  Sender: FDA-Public Use
  Company Number: BR-ROCHE-1007020

PATIENT
  Sex: Female

DRUGS (5)
  1. BUDESONIDE [Suspect]
     Indication: PRODUCT USED FOR UNKNOWN INDICATION
     Dosage: 12/400 MCG
     Route: 065
  2. XOLAIR [Suspect]
     Indication: DYSPNOEA
  3. PREDNISONE TAB [Concomitant]
  4. ALBUTEROL [Concomitant]
     Dosage: SPRAY
  5. XOLAIR [Suspect]
     Indication: BRONCHITIS
     Route: 058
     Dates: start: 20100101

REACTIONS (10)
  - DYSPNOEA [None]
  - DRUG INEFFECTIVE [None]
  - INSOMNIA [None]
  - CHEST PAIN [None]
  - WHEEZING [None]
  - ASTHMA [None]
  - BRONCHITIS [None]
  - BACK PAIN [None]
  - HYPERTENSION [None]
  - FATIGUE [None]
